FAERS Safety Report 20225671 (Version 1)
Quarter: 2021Q4

REPORT INFORMATION
  Report Type: Spontaneous
  Country: FR (occurrence: FR)
  Receive Date: 20211224
  Receipt Date: 20211224
  Transmission Date: 20220303
  Serious: Yes (Hospitalization, Other)
  Sender: FDA-Public Use
  Company Number: FR-AFSSAPS-AVPA20210862

PATIENT
  Age: 34 Year
  Sex: Male
  Weight: 67 kg

DRUGS (1)
  1. ZOLPIDEM [Suspect]
     Active Substance: ZOLPIDEM TARTRATE
     Indication: Product used for unknown indication
     Dosage: 5 BOITES DE 14 CP/JR (700 MG/JR)(5 BOXES OF 14 TABLETS / DAY (700 MG / DAY)
     Route: 048
     Dates: start: 2016

REACTIONS (2)
  - Drug dependence [Recovered/Resolved]
  - Drug detoxification [Recovered/Resolved]

NARRATIVE: CASE EVENT DATE: 20200101
